FAERS Safety Report 8832058 (Version 1)
Quarter: 2012Q4

REPORT INFORMATION
  Report Type: 
  Country: US (occurrence: US)
  Receive Date: 20121009
  Receipt Date: 20121009
  Transmission Date: 20130627
  Serious: No
  Sender: FDA-Public Use
  Company Number: US-ASTRAZENECA-2012SE73290

PATIENT
  Age: 54 Year
  Sex: Male

DRUGS (4)
  1. SEROQUEL [Suspect]
     Route: 048
  2. SEROQUEL [Suspect]
     Route: 048
  3. BLOOD PRESSURE MEDICATION [Concomitant]
  4. ANTIDEPRESSANTS [Concomitant]

REACTIONS (6)
  - Anger [Unknown]
  - Depression [Unknown]
  - Head injury [Unknown]
  - Feeling abnormal [Unknown]
  - Drug dose omission [Unknown]
  - Drug ineffective [Unknown]
